FAERS Safety Report 25641997 (Version 2)
Quarter: 2025Q3

REPORT INFORMATION
  Report Type: Spontaneous
  Country: US (occurrence: US)
  Receive Date: 20250805
  Receipt Date: 20250813
  Transmission Date: 20251021
  Serious: Yes (Hospitalization, Disabling, Other)
  Sender: ABBVIE
  Company Number: US-ABBVIE-6399337

PATIENT
  Age: 67 Year
  Sex: Male

DRUGS (1)
  1. DALVANCE [Suspect]
     Active Substance: DALBAVANCIN HYDROCHLORIDE
     Indication: Osteomyelitis
     Dosage: FORM STRENGTH: 500 MILLIGRAM
     Route: 042
     Dates: start: 202009, end: 202009

REACTIONS (14)
  - Peripheral swelling [Not Recovered/Not Resolved]
  - Muscle spasms [Not Recovered/Not Resolved]
  - Fall [Unknown]
  - Cervical vertebral fracture [Not Recovered/Not Resolved]
  - Skin laceration [Recovered/Resolved]
  - Peripheral venous disease [Unknown]
  - Joint noise [Not Recovered/Not Resolved]
  - Gait inability [Not Recovered/Not Resolved]
  - Dysstasia [Not Recovered/Not Resolved]
  - Skin discolouration [Not Recovered/Not Resolved]
  - Surgery [Unknown]
  - Oedema [Unknown]
  - Spinal operation [Unknown]
  - Surgery [Unknown]

NARRATIVE: CASE EVENT DATE: 20200901
